FAERS Safety Report 15136222 (Version 4)
Quarter: 2019Q1

REPORT INFORMATION
  Report Type: Report from Study
  Country: CN (occurrence: CN)
  Receive Date: 20180712
  Receipt Date: 20190101
  Transmission Date: 20190417
  Serious: Yes (Death, Hospitalization)
  Sender: FDA-Public Use
  Company Number: CN-ASTRAZENECA-2018SE88504

PATIENT
  Age: 25938 Day
  Sex: Male

DRUGS (8)
  1. MEDI4736 [Suspect]
     Active Substance: DURVALUMAB
     Indication: NON-SMALL CELL LUNG CANCER
     Route: 042
     Dates: start: 20180427, end: 20180427
  2. HALOMETASONE [Concomitant]
     Active Substance: HALOMETASONE
     Indication: RASH MACULO-PAPULAR
     Route: 003
     Dates: start: 20180611
  3. CETIRIZINE HYDROCHLORIDE. [Concomitant]
     Active Substance: CETIRIZINE HYDROCHLORIDE
     Indication: HYPERSENSITIVITY
     Dosage: 1 TABLET AS REQUIRED
     Route: 048
     Dates: start: 20180609
  4. COMPOUND GLYCYRRHIZIN CAPSULES [Concomitant]
     Indication: RASH MACULO-PAPULAR
     Dosage: 2 TAB THREE TIMES A DAY
     Route: 048
     Dates: start: 20180609
  5. MEDI4736 [Suspect]
     Active Substance: DURVALUMAB
     Indication: NON-SMALL CELL LUNG CANCER
     Route: 042
     Dates: start: 20180622, end: 20180622
  6. MEDI4736 [Suspect]
     Active Substance: DURVALUMAB
     Indication: NON-SMALL CELL LUNG CANCER
     Route: 042
     Dates: start: 20180330, end: 20180330
  7. LEVOTHYROXINE SODIUM. [Concomitant]
     Active Substance: LEVOTHYROXINE SODIUM
     Indication: HYPOTHYROIDISM
     Route: 048
     Dates: start: 20180621
  8. MEDI4736 [Suspect]
     Active Substance: DURVALUMAB
     Indication: NON-SMALL CELL LUNG CANCER
     Route: 042
     Dates: start: 20180525, end: 20180525

REACTIONS (1)
  - Hepatic failure [Fatal]

NARRATIVE: CASE EVENT DATE: 20180707
